FAERS Safety Report 4834147-2 (Version None)
Quarter: 2005Q4

REPORT INFORMATION
  Report Type: 
  Country: None (occurrence: None)
  Receive Date: 20051122
  Receipt Date: 20051114
  Transmission Date: 20060501
  Serious: Yes (Other)
  Sender: FDA-Public Use
  Company Number: US-JNJFOC-20051104156

PATIENT
  Age: 39 Year
  Sex: Female

DRUGS (3)
  1. TOPAMAX [Suspect]
     Route: 048
     Dates: start: 20051104, end: 20051114
  2. PHENTERMINE [Concomitant]
  3. SYNTHROID [Concomitant]
     Indication: HYPOTHYROIDISM

REACTIONS (4)
  - CONJUNCTIVAL DISORDER [None]
  - EYE PAIN [None]
  - MYOPIA [None]
  - OCULAR ICTERUS [None]
